FAERS Safety Report 8906114 (Version 1)
Quarter: 2012Q4

REPORT INFORMATION
  Report Type: 
  Country: US (occurrence: US)
  Receive Date: 20121112
  Receipt Date: 20121112
  Transmission Date: 20130627
  Serious: Yes (Hospitalization)
  Sender: FDA-Public Use
  Company Number: US-TEVA-369046USA

PATIENT
  Age: 61 Year
  Sex: Male

DRUGS (2)
  1. MINOCYCLINE [Suspect]
     Indication: ACNE
     Route: 048
  2. CARBIDOPA, LEVODOPA [Concomitant]
     Indication: PARKINSON^S DISEASE
     Route: 065

REACTIONS (8)
  - Skin discolouration [Not Recovered/Not Resolved]
  - Scleral discolouration [Not Recovered/Not Resolved]
  - Dyspnoea [Recovering/Resolving]
  - Fatigue [Recovering/Resolving]
  - Fall [Recovering/Resolving]
  - Normochromic normocytic anaemia [Recovering/Resolving]
  - Dehydration [Recovering/Resolving]
  - Orthostatic hypotension [Recovering/Resolving]
